FAERS Safety Report 20658972 (Version 1)
Quarter: 2022Q1

REPORT INFORMATION
  Report Type: Report from Study
  Country: DE (occurrence: DE)
  Receive Date: 20220331
  Receipt Date: 20220331
  Transmission Date: 20220423
  Serious: Yes (Other)
  Sender: FDA-Public Use
  Company Number: DE-JNJFOC-20220356830

PATIENT
  Age: 38 Year
  Sex: Female

DRUGS (1)
  1. PONESIMOD [Suspect]
     Active Substance: PONESIMOD
     Indication: Multiple sclerosis
     Route: 048
     Dates: start: 202111, end: 202201

REACTIONS (2)
  - Atrioventricular block second degree [Recovered/Resolved]
  - Bradycardia [Recovered/Resolved]

NARRATIVE: CASE EVENT DATE: 20220101
